FAERS Safety Report 5999398-2 (Version None)
Quarter: 2008Q4

REPORT INFORMATION
  Report Type: 
  Country: None (occurrence: None)
  Receive Date: 20081215
  Receipt Date: 20080804
  Transmission Date: 20090506
  Serious: No
  Sender: FDA-Public Use
  Company Number: US-AMGEN-KDL285832

PATIENT
  Sex: Female

DRUGS (1)
  1. ENBREL [Suspect]
     Indication: PSORIASIS
     Route: 058
     Dates: start: 20060626

REACTIONS (7)
  - ARTHRALGIA [None]
  - BLOOD URINE PRESENT [None]
  - FATIGUE [None]
  - NIGHT SWEATS [None]
  - PERNICIOUS ANAEMIA [None]
  - PSORIASIS [None]
  - WEST NILE VIRAL INFECTION [None]
